FAERS Safety Report 11235941 (Version 1)
Quarter: 2015Q3

REPORT INFORMATION
  Report Type: Report from Study
  Country: VE (occurrence: VE)
  Receive Date: 20150702
  Receipt Date: 20150702
  Transmission Date: 20151125
  Serious: No
  Sender: FDA-Public Use
  Company Number: PHHY2015VE079716

PATIENT
  Sex: Male

DRUGS (2)
  1. OMEZ//OMEPRAZOLE [Concomitant]
     Indication: GASTRIC DISORDER
     Dosage: 500 MG, QD
     Route: 065
     Dates: start: 201502
  2. TASIGNA [Suspect]
     Active Substance: NILOTINIB
     Indication: CHRONIC MYELOID LEUKAEMIA
     Dosage: 800 MG, QD
     Route: 048
     Dates: start: 201502

REACTIONS (2)
  - Rash [Recovering/Resolving]
  - Serum ferritin abnormal [Recovering/Resolving]
